FAERS Safety Report 9331583 (Version 2)
Quarter: 2013Q4

REPORT INFORMATION
  Report Type: Spontaneous
  Country: US (occurrence: None)
  Receive Date: 20130603
  Receipt Date: 20131107
  Transmission Date: 20140711
  Serious: Yes (Death)
  Sender: FDA-Public Use
  Company Number: 2013US001684

PATIENT
  Age: 34 Year
  Sex: Male
  Weight: 78.3 kg

DRUGS (23)
  1. PONATINIB [Suspect]
     Indication: ACUTE LYMPHOCYTIC LEUKAEMIA
     Route: 048
     Dates: end: 20130415
  2. PONATINIB [Suspect]
     Indication: CHROMOSOME ANALYSIS ABNORMAL
     Route: 048
     Dates: end: 20130415
  3. METOPROLOL TARTRATE [Concomitant]
  4. ULTRAM [Concomitant]
  5. BACLOFEN [Concomitant]
  6. MORPHINE [Concomitant]
  7. ZOFRAN [Concomitant]
  8. CARAFATE [Concomitant]
  9. ASPIRIN [Concomitant]
  10. LIPITOR [Concomitant]
  11. AUGMENTIN [Concomitant]
  12. LOVENOX (ENOXAPARIN SODIUM) [Concomitant]
  13. NEURONTIN (GABAPENTIN) [Concomitant]
  14. HEPARIN [Concomitant]
  15. NOXAFIL (POSACONAZOLE) [Concomitant]
  16. PEPCID [Concomitant]
  17. VALTREX [Concomitant]
  18. SODIUM CHLORIDE [Concomitant]
  19. ZOSYN [Concomitant]
  20. ZYVOX [Concomitant]
  21. CIPRO [Concomitant]
  22. VORICONAZOLE [Concomitant]
  23. PLAVIX [Concomitant]

REACTIONS (33)
  - Chest pain [None]
  - Abdominal pain [None]
  - Nausea [None]
  - Vomiting [None]
  - Pyrexia [None]
  - Mucosal inflammation [None]
  - Lobar pneumonia [None]
  - Septic shock [None]
  - Hypotension [None]
  - Tachycardia [None]
  - Drug dose omission [None]
  - Haemodynamic instability [None]
  - Blood creatinine increased [None]
  - White blood cell count increased [None]
  - Neutrophil percentage increased [None]
  - Acute myocardial infarction [None]
  - Platelet count decreased [None]
  - Pleural effusion [None]
  - Pulmonary mass [None]
  - Lower respiratory tract infection viral [None]
  - Lower respiratory tract infection fungal [None]
  - Lower respiratory tract infection bacterial [None]
  - Right ventricular dysfunction [None]
  - Right ventricular failure [None]
  - Dilatation ventricular [None]
  - Right atrial dilatation [None]
  - Tricuspid valve incompetence [None]
  - Haemoglobin decreased [None]
  - Haematocrit decreased [None]
  - Blood albumin decreased [None]
  - Arrhythmia [None]
  - Vasospasm [None]
  - Pulmonary embolism [None]
